FAERS Safety Report 9832824 (Version 2)
Quarter: 2014Q1

REPORT INFORMATION
  Report Type: Spontaneous
  Country: RO (occurrence: RO)
  Receive Date: 20140121
  Receipt Date: 20140128
  Transmission Date: 20141002
  Serious: Yes (Life-Threatening, Other)
  Sender: FDA-Public Use
  Company Number: RO-GLAXOSMITHKLINE-B0961808A

PATIENT
  Age: 75 Year
  Sex: Male

DRUGS (2)
  1. DUODART [Suspect]
     Indication: BENIGN PROSTATIC HYPERPLASIA
     Dosage: 1CAP PER DAY
     Route: 065
     Dates: start: 20130613, end: 20131230
  2. PRESTARIUM [Concomitant]
     Indication: HYPERTENSION

REACTIONS (4)
  - Loss of consciousness [Recovered/Resolved]
  - Vertigo [Recovered/Resolved]
  - Breast pain [Recovered/Resolved]
  - Fall [Unknown]
